FAERS Safety Report 6691803-1 (Version None)
Quarter: 2010Q2

REPORT INFORMATION
  Report Type: 
  Country: None (occurrence: None)
  Receive Date: 20100422
  Receipt Date: 20090414
  Transmission Date: 20101027
  Serious: No
  Sender: FDA-Public Use
  Company Number: US-ASTRAZENECA-2009UW09440

PATIENT
  Age: 15 Year
  Sex: Male
  Weight: 99 kg

DRUGS (3)
  1. METOPROLOL TARTRATE [Suspect]
     Indication: HYPERTROPHIC CARDIOMYOPATHY
     Route: 048
  2. METOPROLOL TARTRATE [Suspect]
     Route: 048
  3. VERAPAMIL [Concomitant]

REACTIONS (2)
  - FATIGUE [None]
  - ILL-DEFINED DISORDER [None]
